FAERS Safety Report 8166557-2 (Version None)
Quarter: 2012Q1

REPORT INFORMATION
  Report Type: 
  Country: None (occurrence: None)
  Receive Date: 20120227
  Receipt Date: 20110916
  Transmission Date: 20120608
  Serious: Yes (Death)
  Sender: FDA-Public Use
  Company Number: US-BRISTOL-MYERS SQUIBB COMPANY-16066789

PATIENT
  Sex: Female

DRUGS (2)
  1. CARBOPLATIN [Suspect]
  2. TAXOL [Suspect]
     Dosage: DURATION:FOR 6 MONTHS

REACTIONS (1)
  - NEOPLASM MALIGNANT [None]
